FAERS Safety Report 12401955 (Version 2)
Quarter: 2016Q2

REPORT INFORMATION
  Report Type: Spontaneous
  Country: US (occurrence: US)
  Receive Date: 20160525
  Receipt Date: 20160527
  Transmission Date: 20160815
  Serious: No
  Sender: FDA-Public Use
  Company Number: US-SA-2015SA210255

PATIENT
  Age: 89 Year
  Sex: Female

DRUGS (1)
  1. LANTUS [Suspect]
     Active Substance: INSULIN GLARGINE
     Indication: TYPE 2 DIABETES MELLITUS
     Dosage: DOSE;30 UNITS IN THE MORNING AND 20-40 UNITS AT NIGHT
     Route: 065
     Dates: start: 2005

REACTIONS (6)
  - Hyperhidrosis [Unknown]
  - Drug administration error [Unknown]
  - Tremor [Unknown]
  - Hunger [Unknown]
  - Blood glucose decreased [Unknown]
  - Middle insomnia [Unknown]
